FAERS Safety Report 8536219 (Version 2)
Quarter: 2013Q4

REPORT INFORMATION
  Report Type: Spontaneous
  Country: US (occurrence: US)
  Receive Date: 20120430
  Receipt Date: 20131220
  Transmission Date: 20140711
  Serious: Yes (Other)
  Sender: FDA-Public Use
  Company Number: US-ASTRAZENECA-2012SE26121

PATIENT
  Age: 64 Year
  Sex: Male
  Weight: 86.2 kg

DRUGS (8)
  1. SEROQUEL [Suspect]
     Route: 048
  2. CRESTOR [Suspect]
     Indication: BLOOD CHOLESTEROL INCREASED
     Route: 048
     Dates: start: 2009, end: 20131209
  3. RANEXA [Concomitant]
     Indication: CHEST PAIN
     Route: 048
     Dates: start: 201310
  4. PROTONIX [Concomitant]
     Indication: GASTROOESOPHAGEAL REFLUX DISEASE
     Route: 048
     Dates: start: 2002
  5. NEURONTIN [Concomitant]
     Indication: RESTLESS LEGS SYNDROME
     Route: 048
     Dates: start: 2004
  6. ACTIQ [Concomitant]
     Indication: APHAGIA
     Dosage: LOLLIPOP 4 TO 6 PER DAY
     Route: 048
     Dates: start: 2004
  7. PERCOCET [Concomitant]
     Indication: PAIN
     Dosage: 10/325 6 TO 8 PER DAY
     Route: 048
     Dates: start: 2000
  8. TYLENOL [Concomitant]
     Indication: HEADACHE
     Dosage: AS REQUIRED
     Route: 048

REACTIONS (3)
  - Throat cancer [Unknown]
  - Chest pain [Unknown]
  - Drug dose omission [Unknown]
